FAERS Safety Report 4360404-2 (Version None)
Quarter: 2004Q2

REPORT INFORMATION
  Report Type: 
  Country: None (occurrence: None)
  Receive Date: 20040514
  Receipt Date: 20040427
  Transmission Date: 20050107
  Serious: Yes (Hospitalization)
  Sender: FDA-Public Use
  Company Number: 161411

PATIENT
  Age: 32 Year
  Sex: Female
  Weight: 65.7716 kg

DRUGS (10)
  1. AVONEX [Suspect]
     Indication: MULTIPLE SCLEROSIS
     Dosage: 30 MCG QW IM
     Route: 030
     Dates: start: 20010131, end: 20030101
  2. AVONEX [Suspect]
     Indication: MULTIPLE SCLEROSIS
     Dosage: 30 MCG QW IM
     Route: 030
     Dates: start: 20030101
  3. LOW DOSE ASA [Concomitant]
  4. TYLENOL W/ CODEINE [Concomitant]
  5. DARVOCET-N 100 [Concomitant]
  6. CLONAZEPAM [Concomitant]
  7. PREDNISONE [Concomitant]
  8. WELLBUTRIN [Concomitant]
  9. CELEXA [Concomitant]
  10. TOPAMAX [Concomitant]

REACTIONS (10)
  - ANTIPHOSPHOLIPID SYNDROME [None]
  - ANXIETY [None]
  - DEPRESSION [None]
  - DYSFUNCTIONAL UTERINE BLEEDING [None]
  - INSOMNIA [None]
  - LEUKOPENIA [None]
  - MENORRHAGIA [None]
  - PELVIC PROLAPSE [None]
  - THERAPY NON-RESPONDER [None]
  - UTERINE PROLAPSE [None]
